FAERS Safety Report 10593970 (Version 2)
Quarter: 2014Q4

REPORT INFORMATION
  Report Type: Spontaneous
  Country: US (occurrence: CA)
  Receive Date: 20141119
  Receipt Date: 20141126
  Transmission Date: 20150529
  Serious: Yes (Hospitalization, Congenital Anomaly, Other)
  Sender: FDA-Public Use
  Company Number: US-PFIZER INC-2014314361

PATIENT

DRUGS (4)
  1. EFFEXOR [Suspect]
     Active Substance: VENLAFAXINE HYDROCHLORIDE
     Dosage: UNK
     Route: 064
     Dates: start: 1999
  2. VENLAFAXINE HCL [Suspect]
     Active Substance: VENLAFAXINE HYDROCHLORIDE
     Dosage: UNK
     Route: 064
     Dates: start: 2000, end: 2004
  3. EFFEXOR [Suspect]
     Active Substance: VENLAFAXINE HYDROCHLORIDE
     Dosage: UNK
     Route: 064
     Dates: start: 2000, end: 2004
  4. VENLAFAXINE HCL [Suspect]
     Active Substance: VENLAFAXINE HYDROCHLORIDE
     Dosage: UNK
     Route: 064
     Dates: start: 1999

REACTIONS (6)
  - Crying [Unknown]
  - Withdrawal syndrome [Unknown]
  - Maternal exposure during pregnancy [Unknown]
  - Hypotonia [Unknown]
  - Feeling jittery [Unknown]
  - Oxygen saturation decreased [Unknown]
